FAERS Safety Report 8469490-1 (Version None)
Quarter: 2012Q2

REPORT INFORMATION
  Report Type: 
  Country: None (occurrence: None)
  Receive Date: 20120626
  Receipt Date: 20120611
  Transmission Date: 20120825
  Serious: Yes (Other)
  Sender: FDA-Public Use
  Company Number: CHPA2012US012707

PATIENT
  Age: 90 Year
  Sex: Female

DRUGS (7)
  1. VITAMIN B-12 [Concomitant]
     Dosage: UNK, UNK
  2. FERROUS SULFATE TAB [Suspect]
     Indication: BLOOD IRON DECREASED
     Dosage: UNK, UNK
  3. FERROUS SULFATE TAB [Suspect]
     Dosage: 1 DF, PER DAY
     Route: 048
     Dates: start: 20120301, end: 20120301
  4. BISOPROLOL FUMARATE [Concomitant]
     Indication: HYPERTENSION
     Dosage: UNK, UNK
  5. VITAMIN B6 [Concomitant]
     Dosage: UNK, UNK
  6. FUROSEMIDE [Concomitant]
     Indication: OEDEMA PERIPHERAL
     Dosage: UNK, UNK
  7. ONE A DAY ESSENTIAL [Concomitant]
     Dosage: UNK, UNK

REACTIONS (1)
  - CONSTIPATION [None]
